FAERS Safety Report 7550506-1 (Version None)
Quarter: 2011Q2

REPORT INFORMATION
  Report Type: 
  Country: None (occurrence: None)
  Receive Date: 20110615
  Receipt Date: 20110603
  Transmission Date: 20111010
  Serious: Yes (Hospitalization, Other)
  Sender: FDA-Public Use
  Company Number: US-ELI_LILLY_AND_COMPANY-US201106001770

PATIENT
  Age: 42 Year
  Sex: Male

DRUGS (7)
  1. AMITRIPTYLINE HYDROCHLORIDE [Concomitant]
     Dosage: UNK, UNKNOWN
  2. LEVOTHYROXINE SODIUM [Concomitant]
     Dosage: UNK, UNKNOWN
  3. CYMBALTA [Suspect]
     Indication: DEPRESSION
     Dosage: 120 MG, QD
     Dates: start: 20060101, end: 20110503
  4. LISINOPRIL                              /USA/ [Concomitant]
     Dosage: UNK, UNKNOWN
  5. NOVOLOG [Concomitant]
     Dosage: UNK, UNKNOWN
  6. CYMBALTA [Suspect]
     Dosage: 120 MG, QD
     Dates: start: 20110517
  7. NEURONTIN                               /USA/ [Concomitant]
     Dosage: UNK, UNKNOWN

REACTIONS (6)
  - ARTHROPATHY [None]
  - FEELING OF BODY TEMPERATURE CHANGE [None]
  - KNEE OPERATION [None]
  - MALAISE [None]
  - VOMITING [None]
  - NAUSEA [None]
